FAERS Safety Report 12904065 (Version 1)
Quarter: 2016Q4

REPORT INFORMATION
  Report Type: Spontaneous
  Country: BR (occurrence: BR)
  Receive Date: 20161102
  Receipt Date: 20161102
  Transmission Date: 20170207
  Serious: Yes (Other)
  Sender: FDA-Public Use
  Company Number: BR-JNJFOC-20161022578

PATIENT
  Age: 33 Year
  Sex: Female
  Weight: 75 kg

DRUGS (3)
  1. SOVALDI [Concomitant]
     Active Substance: SOFOSBUVIR
     Indication: HEPATITIS C
     Dosage: INTENDED DURATION: 12 WEEKS
     Route: 065
     Dates: start: 20160115, end: 20160401
  2. RIBAVIRIN. [Concomitant]
     Active Substance: RIBAVIRIN
     Indication: HEPATITIS C
     Dosage: INTENDED DURATION: 12 WEEKS;??FREQUENCY: 2 CAPSULES IN THE MORNING AND 1 CAPSULE AT NIGHT
     Route: 065
     Dates: start: 20160115, end: 20160401
  3. OLYSIO [Suspect]
     Active Substance: SIMEPREVIR
     Indication: HEPATITIS C
     Dosage: INTENDED DURATION: 12 WEEKS
     Route: 065
     Dates: start: 20160115, end: 20160401

REACTIONS (9)
  - Constipation [Unknown]
  - Irritability [Unknown]
  - Memory impairment [Unknown]
  - Therapy cessation [Unknown]
  - Chills [Recovered/Resolved]
  - Dry mouth [Unknown]
  - Headache [Unknown]
  - Nausea [Recovered/Resolved]
  - Off label use [Unknown]

NARRATIVE: CASE EVENT DATE: 20160124
